FAERS Safety Report 13422114 (Version 6)
Quarter: 2017Q3

REPORT INFORMATION
  Report Type: Spontaneous
  Country: US (occurrence: US)
  Receive Date: 20170410
  Receipt Date: 20170804
  Transmission Date: 20171127
  Serious: No
  Sender: FDA-Public Use
  Company Number: US-TEVA-757299ACC

PATIENT
  Age: 35 Year
  Sex: Female

DRUGS (44)
  1. LEVOTHYROXIN [Concomitant]
     Active Substance: LEVOTHYROXINE
     Dates: start: 20161108
  2. VITAMIN D CAP 500000 UNT [Concomitant]
     Dates: start: 20161102
  3. VITAMIN D CAP 500000 UNT [Concomitant]
     Dates: start: 20170428
  4. SPIRONOLACT [Concomitant]
     Active Substance: SPIRONOLACTONE
     Dates: start: 20170507
  5. PANTOPRAZOLE [Concomitant]
     Active Substance: PANTOPRAZOLE
     Dates: start: 20170316
  6. TRAMADOL HCL [Concomitant]
     Active Substance: TRAMADOL HYDROCHLORIDE
     Dates: start: 20170428
  7. ABREVA CRE 10 PERCENT [Concomitant]
  8. LITHIUM CARB CAP 150MG [Concomitant]
  9. ZOFRAN [Concomitant]
     Active Substance: ONDANSETRON HYDROCHLORIDE
  10. VITAMIN D CAP 500000 UNT [Concomitant]
     Dates: start: 20170128
  11. CLONAZEPAM. [Concomitant]
     Active Substance: CLONAZEPAM
     Dates: start: 20170316
  12. SPIRONOLACT [Concomitant]
     Active Substance: SPIRONOLACTONE
     Dates: start: 20170302
  13. PANTOPRAZOLE [Concomitant]
     Active Substance: PANTOPRAZOLE
     Dates: start: 20161123
  14. PRAZOSIN HCL [Concomitant]
     Active Substance: PRAZOSIN HYDROCHLORIDE
     Dates: start: 20170214
  15. PRAZOSIN HCL [Concomitant]
     Active Substance: PRAZOSIN HYDROCHLORIDE
     Dates: start: 20161121
  16. ESTRADIOL DIS [Concomitant]
     Dates: start: 20170201
  17. DICLOFENAC [Concomitant]
     Active Substance: DICLOFENAC
  18. LORAZEPAM. [Concomitant]
     Active Substance: LORAZEPAM
     Dates: start: 20170313
  19. LORATADINE. [Concomitant]
     Active Substance: LORATADINE
  20. VITAMIN D CAP 500000 UNT [Concomitant]
     Dates: start: 20170202
  21. CLONAZEPAM. [Concomitant]
     Active Substance: CLONAZEPAM
     Dates: start: 20170416
  22. ROPINIROLE. [Concomitant]
     Active Substance: ROPINIROLE
     Dates: start: 20170208
  23. LITHIUM CARB [Concomitant]
     Active Substance: LITHIUM CARBONATE
     Dates: start: 20170308
  24. BACLOFEN. [Concomitant]
     Active Substance: BACLOFEN
     Dates: start: 20170103
  25. TROPARIN [Concomitant]
  26. LEVOTHYROXIN [Concomitant]
     Active Substance: LEVOTHYROXINE
     Dates: start: 20170206
  27. VIVELLE-DOT DIS [Concomitant]
     Dates: start: 20170104
  28. RIZATRIPTAN. [Concomitant]
     Active Substance: RIZATRIPTAN
     Dates: start: 20170207
  29. ESTRADIOL DIS [Concomitant]
     Dates: start: 20170201
  30. BACLOFEN. [Concomitant]
     Active Substance: BACLOFEN
     Dates: start: 20170320
  31. MONTELUKAST [Concomitant]
     Active Substance: MONTELUKAST SODIUM
  32. LEVOTHYROXIN [Concomitant]
     Active Substance: LEVOTHYROXINE
     Dates: start: 20161108
  33. CLONAZEPAM. [Concomitant]
     Active Substance: CLONAZEPAM
     Dates: start: 20161220
  34. CLONAZEPAM. [Concomitant]
     Active Substance: CLONAZEPAM
     Dates: start: 20170417
  35. LOPERAMIDE [Concomitant]
     Active Substance: LOPERAMIDE
     Dates: start: 20170103
  36. TRAMADOL HCL [Concomitant]
     Active Substance: TRAMADOL HYDROCHLORIDE
     Dates: start: 20170202
  37. MEMANTINE. [Concomitant]
     Active Substance: MEMANTINE
  38. PRAZOSIN HCL [Concomitant]
     Active Substance: PRAZOSIN HYDROCHLORIDE
     Dates: start: 20170316
  39. CELECOXIB. [Concomitant]
     Active Substance: CELECOXIB
     Dates: start: 20170428
  40. COPAXONE [Suspect]
     Active Substance: GLATIRAMER ACETATE
     Indication: MULTIPLE SCLEROSIS
     Route: 058
     Dates: start: 20170222
  41. VITAMIN D CAP 500000 UNT [Concomitant]
     Dates: start: 20161104
  42. VIVELLE-DOT DIS [Concomitant]
     Dates: start: 20170405
  43. ROPINIROLE. [Concomitant]
     Active Substance: ROPINIROLE
     Dates: start: 20170507
  44. FLUTICASONE. [Concomitant]
     Active Substance: FLUTICASONE

REACTIONS (13)
  - Heart rate increased [Unknown]
  - Daydreaming [Recovered/Resolved]
  - Chest pain [Recovered/Resolved]
  - Injection site reaction [Unknown]
  - Anxiety [Recovered/Resolved]
  - Vision blurred [Unknown]
  - Blood oestrogen abnormal [Unknown]
  - Injection site pain [Recovered/Resolved]
  - Injection site pruritus [Not Recovered/Not Resolved]
  - Injection site mass [Recovered/Resolved]
  - Flushing [Recovered/Resolved]
  - Nausea [Recovered/Resolved]
  - Injection site erythema [Not Recovered/Not Resolved]

NARRATIVE: CASE EVENT DATE: 201702
